FAERS Safety Report 20092653 (Version 1)
Quarter: 2021Q4

REPORT INFORMATION
  Report Type: Report from Study
  Country: US (occurrence: US)
  Receive Date: 20211120
  Receipt Date: 20211120
  Transmission Date: 20220303
  Serious: Yes (Other)
  Sender: FDA-Public Use
  Company Number: US-ABBVIE-21K-163-4109113-00

PATIENT
  Age: 52 Year
  Sex: Female

DRUGS (3)
  1. SKYRIZI [Suspect]
     Active Substance: RISANKIZUMAB-RZAA
     Indication: Psoriasis
     Route: 058
     Dates: start: 2020
  2. MODERNA COVID-19 VACCINE [Concomitant]
     Active Substance: CX-024414
     Indication: COVID-19 immunisation
     Dosage: 1ST DOSE MODERNA.
     Route: 030
     Dates: start: 20210415, end: 20210415
  3. MODERNA COVID-19 VACCINE [Concomitant]
     Active Substance: CX-024414
     Dosage: 2ND DOSE MODERNA.
     Route: 030
     Dates: start: 20210514, end: 20210514

REACTIONS (12)
  - Foot operation [Recovering/Resolving]
  - Foot fracture [Not Recovered/Not Resolved]
  - Pain [Recovering/Resolving]
  - Bunion operation [Not Recovered/Not Resolved]
  - Bedridden [Recovering/Resolving]
  - Weight increased [Recovered/Resolved]
  - Impaired healing [Not Recovered/Not Resolved]
  - Hypertension [Unknown]
  - Migraine [Unknown]
  - Nephropathy [Unknown]
  - Diabetes mellitus [Unknown]
  - Fibromyalgia [Unknown]

NARRATIVE: CASE EVENT DATE: 20210101
